FAERS Safety Report 24538148 (Version 2)
Quarter: 2024Q4

REPORT INFORMATION
  Report Type: Report from Study
  Country: CO (occurrence: CO)
  Receive Date: 20241023
  Receipt Date: 20241028
  Transmission Date: 20250115
  Serious: Yes (Hospitalization)
  Sender: ASTELLAS
  Company Number: CO-ASTELLAS-2024-AER-013875

PATIENT
  Age: 7 Year
  Sex: Female
  Weight: 22 kg

DRUGS (1)
  1. TACROLIMUS [Suspect]
     Active Substance: TACROLIMUS
     Indication: Bone marrow transplant
     Dosage: PROGRAF 1MG (2 CAPSULES IN THE MORNING - 2 CAPSULES IN THE AFTERNOON) FOR A TOTAL  OF 4MG.
     Route: 048
     Dates: start: 20240824

REACTIONS (3)
  - Graft versus host disease [Unknown]
  - Cytomegalovirus test positive [Unknown]
  - Off label use [Unknown]

NARRATIVE: CASE EVENT DATE: 20240824
